FAERS Safety Report 5203487-X (Version None)
Quarter: 2007Q1

REPORT INFORMATION
  Report Type: 
  Country: None (occurrence: None)
  Receive Date: 20070110
  Receipt Date: 20070103
  Transmission Date: 20070707
  Serious: Yes (Hospitalization, Other)
  Sender: FDA-Public Use
  Company Number: US-AVENTIS-200510323US

PATIENT
  Sex: Male

DRUGS (18)
  1. ARAVA [Suspect]
     Indication: RHEUMATOID ARTHRITIS
     Dates: start: 20031201, end: 20031201
  2. ARAVA [Suspect]
     Dates: start: 20031201, end: 20040101
  3. PREDNISONE TAB [Suspect]
  4. PREDNISONE TAB [Suspect]
  5. PREDNISONE TAB [Suspect]
  6. WELLBUTRIN [Concomitant]
  7. NORVASC [Concomitant]
  8. TYLENOL [Concomitant]
     Dosage: DOSE: UNK
  9. DEMEROL [Concomitant]
     Dosage: DOSE: UNK
  10. BENAZEPRIL HYDROCHLORIDE [Concomitant]
  11. LOSARTAN POTASSIUM [Concomitant]
  12. HYDROCHLOROTHIAZIDE [Concomitant]
  13. PROTONIX [Concomitant]
  14. RESTORIL                           /00393701/ [Concomitant]
  15. XOPENEX [Concomitant]
     Dosage: DOSE: UNK
  16. HYZAAR [Concomitant]
     Dosage: DOSE: UNK
  17. CELEBREX [Concomitant]
  18. PAXIL [Concomitant]

REACTIONS (18)
  - ALVEOLAR PROTEINOSIS [None]
  - AORTIC VALVE STENOSIS [None]
  - ASTHENIA [None]
  - BRONCHOALVEOLAR LAVAGE ABNORMAL [None]
  - CHEST PAIN [None]
  - COUGH [None]
  - DIARRHOEA [None]
  - DISORIENTATION [None]
  - DYSPNOEA [None]
  - HALLUCINATION [None]
  - HYPOXIA [None]
  - PLEURAL FIBROSIS [None]
  - PNEUMONIA [None]
  - PNEUMONITIS [None]
  - PNEUMOTHORAX [None]
  - PSYCHOTIC DISORDER [None]
  - PYREXIA [None]
  - WEIGHT DECREASED [None]
